FAERS Safety Report 5979562-9 (Version None)
Quarter: 2008Q4

REPORT INFORMATION
  Report Type: 
  Country: None (occurrence: None)
  Receive Date: 20081204
  Receipt Date: 20081125
  Transmission Date: 20090506
  Serious: Yes (Hospitalization)
  Sender: FDA-Public Use
  Company Number: FR-ELI_LILLY_AND_COMPANY-FR200810002702

PATIENT
  Sex: Male

DRUGS (11)
  1. ZYPREXA [Suspect]
     Indication: BIPOLAR DISORDER
     Dosage: 7.5 MG, 2/D
     Route: 048
     Dates: start: 20071224
  2. TERALITHE [Concomitant]
     Indication: BIPOLAR DISORDER
     Dosage: 400 MG, 3/D
     Route: 048
     Dates: start: 19890101
  3. TERALITHE [Concomitant]
     Dosage: 400 MG, 4/D
     Route: 048
     Dates: start: 20080101, end: 20080101
  4. TERALITHE [Concomitant]
     Dosage: 400 MG, 3/D
     Route: 048
     Dates: start: 19890101
  5. XANAX [Concomitant]
     Indication: ANXIETY
     Dosage: UNK, UNK
     Route: 048
  6. SEROPRAM [Concomitant]
     Indication: DEPRESSION
     Dosage: 10 UNK, DAILY (1/D)
     Route: 048
  7. THERALENE [Concomitant]
     Indication: INSOMNIA
     Dosage: 20 GTT, DAILY (1/D)
     Route: 048
  8. MEPRONIZINE [Concomitant]
     Indication: INSOMNIA
     Route: 048
  9. LEVOTHYROX [Concomitant]
     Indication: THYROID DISORDER
     Dosage: 200 MG, UNK
     Route: 048
  10. TAHOR [Concomitant]
     Indication: HYPERCHOLESTEROLAEMIA
     Route: 048
  11. CYTOMEL [Concomitant]
     Indication: THYROID DISORDER
     Dosage: 25 MG, UNK
     Route: 048

REACTIONS (2)
  - DRUG LEVEL DECREASED [None]
  - POLYDIPSIA PSYCHOGENIC [None]
